FAERS Safety Report 4291960-0 (Version None)
Quarter: 2004Q1

REPORT INFORMATION
  Report Type: 
  Country: None (occurrence: None)
  Receive Date: 20040126
  Receipt Date: 20031106
  Transmission Date: 20041129
  Serious: No
  Sender: FDA-Public Use
  Company Number: US_031198874

PATIENT
  Sex: Female

DRUGS (1)
  1. FORTEO [Suspect]
     Dates: start: 20030724

REACTIONS (5)
  - ABDOMINAL MASS [None]
  - CARDIAC FLUTTER [None]
  - DIZZINESS [None]
  - HYPERTENSION [None]
  - SLUGGISHNESS [None]
